FAERS Safety Report 4620812-9 (Version None)
Quarter: 2005Q1

REPORT INFORMATION
  Report Type: 
  Country: None (occurrence: None)
  Receive Date: 20050325
  Receipt Date: 20041112
  Transmission Date: 20050727
  Serious: Yes (Hospitalization, Other)
  Sender: FDA-Public Use
  Company Number: 2004111644

PATIENT
  Age: 48 Year
  Sex: Female
  Weight: 71.2147 kg

DRUGS (5)
  1. CELEBREX [Suspect]
     Indication: OSTEOARTHRITIS
     Dosage: 200 MG (200 MG, 1 IN 1 D), ORAL
     Route: 048
     Dates: start: 19980101
  2. ISOSORBIDE MONONITRATE [Concomitant]
  3. ESOMEPRAZOLE (ESOMEPRAZOLE) [Concomitant]
  4. TRIAMTERENE (TRIAMTERENE) [Concomitant]
  5. FUROSEMIDE [Concomitant]

REACTIONS (12)
  - BLISTER [None]
  - CARDIAC ARREST [None]
  - DRUG INEFFECTIVE [None]
  - GANGRENE [None]
  - GASTRIC OPERATION [None]
  - INCISION SITE COMPLICATION [None]
  - PAIN [None]
  - PROCEDURAL COMPLICATION [None]
  - RESPIRATORY FAILURE [None]
  - SCAR [None]
  - SWELLING [None]
  - THROMBOSIS [None]
